FAERS Safety Report 18556707 (Version 2)
Quarter: 2021Q4

REPORT INFORMATION
  Report Type: Report from Study
  Country: US (occurrence: US)
  Receive Date: 20201128
  Receipt Date: 20211004
  Transmission Date: 20220303
  Serious: No
  Sender: FDA-Public Use
  Company Number: NVSC2020US312120

PATIENT
  Age: 61 Year
  Sex: Male

DRUGS (1)
  1. ENTRESTO [Suspect]
     Active Substance: SACUBITRIL\VALSARTAN
     Indication: Cardiac failure
     Dosage: 24.26 MG, BID
     Route: 048
     Dates: start: 202006

REACTIONS (7)
  - Fall [Unknown]
  - Heart rate decreased [Unknown]
  - Dyspnoea [Unknown]
  - Gait inability [Unknown]
  - Blood potassium decreased [Unknown]
  - Cough [Unknown]
  - Asthenia [Unknown]

NARRATIVE: CASE EVENT DATE: 20201115
